FAERS Safety Report 18413282 (Version 3)
Quarter: 2020Q4

REPORT INFORMATION
  Report Type: Spontaneous
  Country: US (occurrence: US)
  Receive Date: 20201021
  Receipt Date: 20201217
  Transmission Date: 20210114
  Serious: No
  Sender: FDA-Public Use
  Company Number: US-ASTRAZENECA-2020SF35380

PATIENT
  Age: 15328 Day
  Sex: Male
  Weight: 81.6 kg

DRUGS (2)
  1. SYNJARDY [Concomitant]
     Active Substance: EMPAGLIFLOZIN\METFORMIN HYDROCHLORIDE
     Indication: DIABETES MELLITUS
     Route: 048
  2. BYDUREON BCISE [Suspect]
     Active Substance: EXENATIDE
     Indication: TYPE 2 DIABETES MELLITUS
     Route: 058

REACTIONS (6)
  - Injection site pain [Recovered/Resolved]
  - Wrong technique in device usage process [Recovered/Resolved]
  - Poor quality device used [Recovered/Resolved]
  - Device malfunction [Unknown]
  - Device leakage [Unknown]
  - Malaise [Unknown]

NARRATIVE: CASE EVENT DATE: 20201012
